FAERS Safety Report 6247914-8 (Version None)
Quarter: 2009Q2

REPORT INFORMATION
  Report Type: 
  Country: None (occurrence: None)
  Receive Date: 20090626
  Receipt Date: 20090615
  Transmission Date: 20091009
  Serious: Yes (Other)
  Sender: FDA-Public Use
  Company Number: PHHY2009SE23643

PATIENT
  Sex: Male

DRUGS (1)
  1. LEPONEX [Suspect]
     Dosage: UNK
     Dates: start: 20060301

REACTIONS (2)
  - MENTAL IMPAIRMENT [None]
  - PLATELET COUNT DECREASED [None]
